FAERS Safety Report 5582211-5 (Version None)
Quarter: 2008Q1

REPORT INFORMATION
  Report Type: 
  Country: None (occurrence: None)
  Receive Date: 20080104
  Receipt Date: 20071218
  Transmission Date: 20080703
  Serious: Yes (Other)
  Sender: FDA-Public Use
  Company Number: FR-BRISTOL-MYERS SQUIBB COMPANY-14027486

PATIENT
  Sex: Female

DRUGS (2)
  1. GLUCOPHAGE [Suspect]
     Indication: TYPE 2 DIABETES MELLITUS
     Route: 048
     Dates: end: 20060518
  2. AVONEX [Suspect]
     Indication: MULTIPLE SCLEROSIS
     Dosage: 30 MICROGRAMS/0.5 ML.
     Route: 030
     Dates: end: 20060517

REACTIONS (3)
  - AMNIOTIC FLUID VOLUME DECREASED [None]
  - FOETAL GROWTH RETARDATION [None]
  - PREGNANCY [None]
